FAERS Safety Report 12324557 (Version 1)
Quarter: 2016Q2

REPORT INFORMATION
  Report Type: Report from Study
  Country: US (occurrence: US)
  Receive Date: 20160502
  Receipt Date: 20160502
  Transmission Date: 20160815
  Serious: No
  Sender: FDA-Public Use
  Company Number: US-ABBVIE-16P-163-1569119-00

PATIENT
  Age: 55 Year
  Sex: Male
  Weight: 177.06 kg

DRUGS (2)
  1. ANDROGEL [Suspect]
     Active Substance: TESTOSTERONE
     Indication: BLOOD TESTOSTERONE DECREASED
     Route: 061
     Dates: start: 201601, end: 201602
  2. CLOMID [Concomitant]
     Active Substance: CLOMIPHENE CITRATE
     Indication: PRODUCT USED FOR UNKNOWN INDICATION

REACTIONS (9)
  - Constipation [Unknown]
  - Pollakiuria [Recovered/Resolved]
  - Abdominal pain upper [Recovered/Resolved]
  - Palpitations [Recovered/Resolved]
  - Abdominal pain [Unknown]
  - Heart rate increased [Unknown]
  - Heart rate increased [Recovered/Resolved]
  - Renal pain [Unknown]
  - Chest discomfort [Recovered/Resolved]

NARRATIVE: CASE EVENT DATE: 201602
